FAERS Safety Report 4989424-1 (Version None)
Quarter: 2006Q2

REPORT INFORMATION
  Report Type: 
  Country: None (occurrence: None)
  Receive Date: 20060502
  Receipt Date: 20051005
  Transmission Date: 20061013
  Serious: Yes (Hospitalization, Other)
  Sender: FDA-Public Use
  Company Number: PR-MERCK-0510USA05083

PATIENT
  Age: 65 Year
  Sex: Female
  Weight: 64 kg

DRUGS (10)
  1. VIOXX [Suspect]
     Indication: WHIPLASH INJURY
     Route: 048
     Dates: start: 19990101, end: 20030401
  2. VIOXX [Suspect]
     Route: 048
     Dates: start: 19990101, end: 20030401
  3. VIOXX [Suspect]
     Indication: OSTEOPOROSIS
     Route: 048
     Dates: start: 19990101, end: 20030401
  4. VIOXX [Suspect]
     Route: 048
     Dates: start: 19990101, end: 20030401
  5. [THERAPY UNSPECIFIED] [Concomitant]
     Route: 065
  6. NORFLEX [Concomitant]
     Route: 065
  7. NEURONTIN [Concomitant]
     Route: 065
  8. VERAPAMIL [Concomitant]
     Route: 065
  9. ZOCOR [Concomitant]
     Route: 065
  10. [THERAPY UNSPECIFIED] [Concomitant]
     Route: 065

REACTIONS (10)
  - ARRHYTHMIA [None]
  - CARDIOVASCULAR DISORDER [None]
  - CEREBROVASCULAR ACCIDENT [None]
  - CHEST PAIN [None]
  - EMBOLISM [None]
  - GASTROINTESTINAL DISORDER [None]
  - HYPERTENSION [None]
  - OVERDOSE [None]
  - PALPITATIONS [None]
  - SYNCOPE [None]
